FAERS Safety Report 5760385-0 (Version None)
Quarter: 2008Q2

REPORT INFORMATION
  Report Type: 
  Country: None (occurrence: None)
  Receive Date: 20080605
  Receipt Date: 20080502
  Transmission Date: 20081010
  Serious: Yes (Hospitalization)
  Sender: FDA-Public Use
  Company Number: US-GENENTECH-261923

PATIENT
  Sex: Male
  Weight: 62.5 kg

DRUGS (3)
  1. HUMATROPE [Suspect]
     Indication: GROWTH HORMONE DEFICIENCY
     Dosage: 2.4 MG, QD
     Route: 058
     Dates: start: 19940425
  2. CORTEF [Concomitant]
     Indication: DRUG USE FOR UNKNOWN INDICATION
     Dosage: 5 MG, BID
     Route: 048
  3. LEVOTHYROXINE SODIUM [Concomitant]
     Indication: DRUG USE FOR UNKNOWN INDICATION
     Dosage: 75 A?G, QD
     Route: 048

REACTIONS (1)
  - PERICARDIAL EFFUSION [None]
